FAERS Safety Report 7632977-5 (Version None)
Quarter: 2011Q3

REPORT INFORMATION
  Report Type: 
  Country: None (occurrence: None)
  Receive Date: 20110725
  Receipt Date: 20110723
  Transmission Date: 20111222
  Serious: Yes (Other)
  Sender: FDA-Public Use
  Company Number: US-PFIZER INC-2011167412

PATIENT
  Sex: Female
  Weight: 68 kg

DRUGS (15)
  1. SAVELLA [Suspect]
     Indication: FIBROMYALGIA
     Dosage: UNK
     Route: 048
     Dates: start: 20110101, end: 20110101
  2. ESTRATEST [Concomitant]
     Dosage: UNK
     Route: 048
  3. AMBIEN [Concomitant]
     Dosage: UNK
     Route: 048
  4. SAVELLA [Suspect]
     Indication: ARTHRALGIA
  5. NEURONTIN [Suspect]
     Indication: ARTHRALGIA
  6. LYRICA [Suspect]
     Indication: FIBROMYALGIA
     Dosage: UNK
     Route: 048
     Dates: start: 20110101, end: 20110101
  7. ZEGERID [Concomitant]
     Dosage: UNK
  8. SYNTHROID [Concomitant]
     Dosage: UNK
     Route: 048
  9. VITAMIN D [Concomitant]
     Dosage: UNK
  10. DEXTROMETHORPHAN [Concomitant]
     Dosage: UNK
  11. NEURONTIN [Suspect]
     Indication: FIBROMYALGIA
     Dosage: UNK
  12. LYRICA [Suspect]
     Indication: ARTHRALGIA
  13. CELEXA [Concomitant]
     Dosage: UNK
     Route: 048
  14. NEXIUM [Concomitant]
     Dosage: UNK
     Route: 048
  15. CALCIUM [Concomitant]
     Dosage: UNK

REACTIONS (7)
  - SEROTONIN SYNDROME [None]
  - FATIGUE [None]
  - PAIN [None]
  - MALAISE [None]
  - SOMNOLENCE [None]
  - DRUG INEFFECTIVE [None]
  - FRUSTRATION [None]
